FAERS Safety Report 7443078-3 (Version None)
Quarter: 2011Q2

REPORT INFORMATION
  Report Type: 
  Country: None (occurrence: None)
  Receive Date: 20110428
  Receipt Date: 20110419
  Transmission Date: 20111010
  Serious: Yes (Death, Other)
  Sender: FDA-Public Use
  Company Number: DE-ELI_LILLY_AND_COMPANY-DE201104006363

PATIENT

DRUGS (2)
  1. CIALIS [Suspect]
     Indication: ERECTILE DYSFUNCTION
     Dosage: 10 MG, UNK
     Route: 050
  2. LORANO [Concomitant]

REACTIONS (4)
  - DRUG EXPOSURE BEFORE PREGNANCY [None]
  - PATERNAL DRUGS AFFECTING FOETUS [None]
  - INTRA-UTERINE DEATH [None]
  - ABORTED PREGNANCY [None]
